FAERS Safety Report 23398859 (Version 3)
Quarter: 2024Q2

REPORT INFORMATION
  Report Type: Spontaneous
  Country: DE (occurrence: DE)
  Receive Date: 20240112
  Receipt Date: 20240403
  Transmission Date: 20240716
  Serious: Yes (Other)
  Sender: FDA-Public Use
  Company Number: DE-002147023-NVSC2024DE004932

PATIENT
  Sex: Female

DRUGS (8)
  1. KESIMPTA [Suspect]
     Active Substance: OFATUMUMAB
     Indication: Product used for unknown indication
     Dosage: UNK (APPROXIMATELY ONE YEAR)
     Route: 065
  2. KISQALI [Suspect]
     Active Substance: RIBOCICLIB
     Indication: Product used for unknown indication
     Dosage: UNK (2-0-0)
     Route: 065
     Dates: end: 20231108
  3. KISQALI [Suspect]
     Active Substance: RIBOCICLIB
     Dosage: UNK (2-0-0)
     Route: 065
     Dates: start: 20231117
  4. EQUINOVO [Concomitant]
     Indication: Product used for unknown indication
     Dosage: UNK (2-0-0)
     Route: 065
  5. LETROZOLE [Concomitant]
     Active Substance: LETROZOLE
     Indication: Product used for unknown indication
     Dosage: UNK (1-0-0)
     Route: 065
  6. RIZATRIPTAN AL [Concomitant]
     Indication: Product used for unknown indication
     Dosage: UNK (1-0-0)
     Route: 065
  7. XGEVA [Concomitant]
     Active Substance: DENOSUMAB
     Indication: Product used for unknown indication
     Dosage: UNK (SOLUTION FOR INJECTION IN VIAL)
     Route: 065
  8. GOSERELIN [Concomitant]
     Active Substance: GOSERELIN
     Indication: Product used for unknown indication
     Dosage: UNK (10,8) (MONTHLY DEPOT IN PRE-FILLED SYRINGE WITH IMPLANT)
     Route: 065

REACTIONS (5)
  - Leukopenia [Recovering/Resolving]
  - Hormone receptor positive HER2 negative breast cancer [Unknown]
  - Neutrophil count decreased [Recovering/Resolving]
  - Lymphocyte count decreased [Recovering/Resolving]
  - Product use issue [Not Recovered/Not Resolved]

NARRATIVE: CASE EVENT DATE: 20230601
